FAERS Safety Report 9804985 (Version 3)
Quarter: 2014Q1

REPORT INFORMATION
  Report Type: Report from Study
  Country: US (occurrence: US)
  Receive Date: 20140109
  Receipt Date: 20140221
  Transmission Date: 20141002
  Serious: Yes (Other)
  Sender: FDA-Public Use
  Company Number: US-ROCHE-1330366

PATIENT
  Sex: Female

DRUGS (2)
  1. LUCENTIS [Suspect]
     Indication: AGE-RELATED MACULAR DEGENERATION
     Dosage: LEFT EYE
     Route: 050
  2. LUCENTIS [Suspect]
     Indication: MACULAR DEGENERATION

REACTIONS (4)
  - Blindness [Unknown]
  - Visual acuity reduced [Unknown]
  - Eye pain [Unknown]
  - Malaise [Unknown]
